FAERS Safety Report 6969406-0 (Version None)
Quarter: 2010Q3

REPORT INFORMATION
  Report Type: 
  Country: None (occurrence: None)
  Receive Date: 20100902
  Receipt Date: 20100823
  Transmission Date: 20110219
  Serious: Yes (Death, Hospitalization)
  Sender: FDA-Public Use
  Company Number: 009127

PATIENT
  Sex: Female
  Weight: 65.3 kg

DRUGS (8)
  1. CERTOLIZUMAB PEGOL (CERTOLIZUMAB PEGOL) [Suspect]
     Indication: RHEUMATOID ARTHRITIS
     Dosage: SEE IMAGE
     Route: 058
     Dates: start: 20051226, end: 20060613
  2. CERTOLIZUMAB PEGOL (CERTOLIZUMAB PEGOL) [Suspect]
     Indication: RHEUMATOID ARTHRITIS
     Dosage: SEE IMAGE
     Route: 058
     Dates: start: 20060613
  3. METHOTREXATE [Concomitant]
  4. PREDNISOLONE [Concomitant]
  5. DICLOFENAC [Concomitant]
  6. ISONIAZID [Concomitant]
  7. PYRIDOXIN [Concomitant]
  8. ALMAGEL /00909601/ [Concomitant]

REACTIONS (4)
  - CEREBRAL HAEMORRHAGE [None]
  - EOSINOPHIL COUNT INCREASED [None]
  - FALL [None]
  - LOSS OF CONSCIOUSNESS [None]
